FAERS Safety Report 9393048 (Version 3)
Quarter: 2013Q3

REPORT INFORMATION
  Report Type: Spontaneous
  Country: US (occurrence: US)
  Receive Date: 20130710
  Receipt Date: 20130906
  Transmission Date: 20140515
  Serious: Yes (Other)
  Sender: FDA-Public Use
  Company Number: US-PFIZER INC-2013201798

PATIENT
  Age: 101 Year
  Sex: Female

DRUGS (5)
  1. NORVASC [Suspect]
     Indication: HYPERTENSION
     Dosage: 2.5 MG, 1X/DAY
     Route: 048
  2. DEXILANT [Concomitant]
     Indication: GASTROOESOPHAGEAL REFLUX DISEASE
     Dosage: 30 MG, DAILY
  3. METOPROLOL SUCCINATE [Concomitant]
     Indication: HYPERTENSION
     Dosage: 25 MG, DAILY
  4. LORAZEPAM [Concomitant]
     Dosage: 0.5 MG,  AT BEDTIME AS NEEDED
  5. SYNTHROID [Concomitant]
     Indication: HYPOTHYROIDISM
     Dosage: 100 UG, DAILY

REACTIONS (3)
  - Hypoacusis [Unknown]
  - Visual acuity reduced [Unknown]
  - Oedema peripheral [Unknown]
